FAERS Safety Report 9700891 (Version 1)
Quarter: 2013Q4

REPORT INFORMATION
  Report Type: Spontaneous
  Country: GB (occurrence: GB)
  Receive Date: 20131121
  Receipt Date: 20131121
  Transmission Date: 20140711
  Serious: Yes (Other)
  Sender: FDA-Public Use
  Company Number: PHFR2013GB006541

PATIENT
  Age: 55 Year
  Sex: Male

DRUGS (6)
  1. DEFERASIROX [Suspect]
     Indication: MYELODYSPLASTIC SYNDROME
     Dosage: 500 MG, QD
     Route: 048
     Dates: start: 20130218
  2. DEFERASIROX [Suspect]
     Dosage: 1000 MG, QD
     Route: 048
     Dates: end: 20130704
  3. ACICLOVIR [Concomitant]
     Dosage: 400 MG, BID
     Route: 048
  4. PHENOXYMETHYLPENICILLIN [Concomitant]
     Dosage: 250 UNK, UNK
     Route: 048
  5. BIO FOLIC ACID [Concomitant]
     Dosage: 5 UNK, QD
     Route: 048
  6. PENTAMIDINE [Concomitant]
     Dosage: 300 MG, QMO

REACTIONS (3)
  - Punctate keratitis [Not Recovered/Not Resolved]
  - Eye pruritus [Unknown]
  - Vision blurred [Unknown]
